FAERS Safety Report 7512149-5 (Version None)
Quarter: 2011Q2

REPORT INFORMATION
  Report Type: 
  Country: None (occurrence: None)
  Receive Date: 20110520
  Receipt Date: 20110519
  Transmission Date: 20111010
  Serious: Yes (Other)
  Sender: FDA-Public Use
  Company Number: GRT 2011-12026

PATIENT
  Age: 57 Year
  Sex: Male

DRUGS (4)
  1. TRAMADOL HCL [Concomitant]
  2. LIDODERM [Suspect]
     Indication: BACK PAIN
     Dosage: 1 PATCH,2-3 HOURS A DAY
     Dates: start: 20101101, end: 20110215
  3. NEXIUM [Concomitant]
  4. CYMBALTA [Concomitant]

REACTIONS (2)
  - HAEMATEMESIS [None]
  - NAUSEA [None]
